FAERS Safety Report 18660965 (Version 1)
Quarter: 2020Q4

REPORT INFORMATION
  Report Type: Other
  Country: GB (occurrence: GB)
  Receive Date: 20201224
  Receipt Date: 20201224
  Transmission Date: 20210114
  Serious: Yes (Other)
  Sender: FDA-Public Use
  Company Number: GB-STRIDES ARCOLAB LIMITED-2020SP016243

PATIENT
  Age: 38 Year
  Sex: Female

DRUGS (5)
  1. EUMOVATE [Suspect]
     Active Substance: CLOBETASONE BUTYRATE
     Indication: ECZEMA
     Dosage: UNK, SMALL AMOUNTS, PRN
     Route: 061
     Dates: start: 20120101
  2. HYDROCORTISONE. [Suspect]
     Active Substance: HYDROCORTISONE
     Indication: ECZEMA
     Dosage: UNK, PRN
     Route: 061
     Dates: start: 19870101, end: 20201101
  3. BETNOVATE C [Suspect]
     Active Substance: BETAMETHASONE VALERATE\CLIOQUINOL
     Indication: ECZEMA
     Dosage: 3 DOSAGE FORM PER DAY, APPLY DILUTED MIXTURE INCLUDING ON FACE THEN TAPER DOWN TO A REGULAR MAINTENA
     Route: 061
     Dates: start: 20180601, end: 20200401
  4. CITALOPRAM [Concomitant]
     Active Substance: CITALOPRAM HYDROBROMIDE
     Indication: PRODUCT USED FOR UNKNOWN INDICATION
     Dosage: UNK
     Route: 065
  5. DIPROBASE [PARAFFIN, LIQUID;WHITE SOFT PARAFFIN] [Concomitant]
     Indication: PRODUCT USED FOR UNKNOWN INDICATION
     Dosage: UNK
     Route: 065

REACTIONS (9)
  - Alopecia [Not Recovered/Not Resolved]
  - Photosensitivity reaction [Not Recovered/Not Resolved]
  - Steroid withdrawal syndrome [Unknown]
  - Dry skin [Unknown]
  - Skin burning sensation [Not Recovered/Not Resolved]
  - Skin fissures [Unknown]
  - Erythema [Not Recovered/Not Resolved]
  - Pain of skin [Not Recovered/Not Resolved]
  - Product administration error [Unknown]

NARRATIVE: CASE EVENT DATE: 20200401
